FAERS Safety Report 9305105 (Version 1)
Quarter: 2013Q2

REPORT INFORMATION
  Report Type: Spontaneous
  Country: US (occurrence: None)
  Receive Date: 20130521
  Receipt Date: 20130521
  Transmission Date: 20140414
  Serious: Yes (Other)
  Sender: FDA-Public Use
  Company Number: AUR-APL-2013-04069

PATIENT
  Age: 67 Year
  Sex: Female
  Weight: 81 kg

DRUGS (13)
  1. VENLAFAXINE (VENLAFAXINE) [Suspect]
     Indication: DEPRESSION
  2. TRAZODONE (TRAZODONE) [Concomitant]
  3. COZAAR (LOSARTAN POTASSIUM) [Concomitant]
  4. AMLODIPINE (AMLODIPINE) [Concomitant]
  5. LOSARTAN (LOSARTAN) [Concomitant]
  6. FOLIC ACID (FOLIC ACID) [Concomitant]
  7. NEXIUM (ESOMEPRAZOLE MAGNESIUM) [Concomitant]
  8. DEXTROL LA (TOLTERODINE L-TARTRATE) [Concomitant]
  9. MELOXICAM (MELOXICAM) [Concomitant]
  10. LEVOTHYROXINE (LEVOTHYROXINE) [Concomitant]
  11. BYSTOLIC (NEBIVOLOL HYDROCHLORIDE) [Concomitant]
  12. POTASSIUM (POTASSIUM) [Concomitant]
  13. FUROSEMIDE (FUROSEMIDE) [Concomitant]

REACTIONS (2)
  - Convulsion [None]
  - Drug ineffective [None]
